FAERS Safety Report 23439203 (Version 2)
Quarter: 2024Q1

REPORT INFORMATION
  Report Type: Spontaneous
  Country: CN (occurrence: CN)
  Receive Date: 20240124
  Receipt Date: 20240327
  Transmission Date: 20240410
  Serious: Yes (Hospitalization)
  Sender: FDA-Public Use
  Company Number: CN-ELI_LILLY_AND_COMPANY-CN202401007516

PATIENT
  Age: 71 Year
  Sex: Male
  Weight: 75 kg

DRUGS (8)
  1. TALTZ [Suspect]
     Active Substance: IXEKIZUMAB
     Indication: Psoriasis
     Dosage: 160 MG, SINGLE (TWO DOSES OF 80 MG)
     Route: 058
     Dates: start: 20221012, end: 20221012
  2. TALTZ [Suspect]
     Active Substance: IXEKIZUMAB
     Dosage: 80 MG, OTHER (EVERY TWO WEEKS)
     Route: 058
     Dates: start: 20221026, end: 20230201
  3. TALTZ [Suspect]
     Active Substance: IXEKIZUMAB
     Dosage: 80 MG, MONTHLY (1/M)
     Route: 058
     Dates: start: 20230301, end: 20230401
  4. TALTZ [Suspect]
     Active Substance: IXEKIZUMAB
     Dosage: 160 MG, SINGLE (TWO DOSES OF 80 MG)
     Route: 058
     Dates: start: 20231012, end: 20231012
  5. TALTZ [Suspect]
     Active Substance: IXEKIZUMAB
     Dosage: 80 MG, OTHER (EVRY TWO WEEKS)
     Route: 058
     Dates: start: 20231026, end: 20240104
  6. TALTZ [Suspect]
     Active Substance: IXEKIZUMAB
     Dosage: 80 MG, OTHER (ONCE EVERY FOUR WEEKS)
     Route: 058
     Dates: start: 20240201
  7. CLOPIDOGREL [Concomitant]
     Active Substance: CLOPIDOGREL BISULFATE
     Indication: Cardiac disorder
     Dosage: 75 MG, DAILY (25MGX3)
     Route: 048
  8. METOPROLOL TARTRATE [Concomitant]
     Active Substance: METOPROLOL TARTRATE
     Indication: Cardiac disorder
     Dosage: 7.5 MG, DAILY
     Route: 048

REACTIONS (2)
  - Psoriasis [Recovering/Resolving]
  - Nasopharyngitis [Recovering/Resolving]

NARRATIVE: CASE EVENT DATE: 20231001
